FAERS Safety Report 24424724 (Version 3)
Quarter: 2024Q4

REPORT INFORMATION
  Report Type: Spontaneous
  Country: US (occurrence: US)
  Receive Date: 20241010
  Receipt Date: 20241021
  Transmission Date: 20250115
  Serious: Yes (Other)
  Sender: PFIZER
  Company Number: US-PFIZER INC-PV202400130813

PATIENT
  Age: 60 Year
  Sex: Male

DRUGS (4)
  1. METHOTREXATE SODIUM [Suspect]
     Active Substance: METHOTREXATE SODIUM
     Indication: Chronic lymphocytic leukaemia
     Dosage: TWO CYCLES, HIGH DOSE
     Route: 042
  2. METHOTREXATE SODIUM [Suspect]
     Active Substance: METHOTREXATE SODIUM
     Dosage: 12 MG, CYCLIC
     Route: 037
  3. HYDROCORTISONE [Concomitant]
     Active Substance: HYDROCORTISONE
     Indication: Chronic lymphocytic leukaemia
     Dosage: 15 MG, TWO HOURS AFTER SEVENTH IT CHEMOTHERAPEUTIC INFUSION
     Route: 037
  4. CYTARABINE [Concomitant]
     Active Substance: CYTARABINE
     Indication: Chronic lymphocytic leukaemia
     Dosage: 50 MG, TWO HOURS AFTER SEVENTH IT CHEMOTHERAPEUTIC INFUSION
     Route: 037

REACTIONS (2)
  - Leukoencephalopathy [Recovered/Resolved]
  - Neurotoxicity [Recovered/Resolved]
